APPROVED DRUG PRODUCT: KOVANAZE
Active Ingredient: OXYMETAZOLINE HYDROCHLORIDE; TETRACAINE HYDROCHLORIDE
Strength: 0.1MG/SPRAY;6MG/SPRAY
Dosage Form/Route: SPRAY, METERED;NASAL
Application: N208032 | Product #001
Applicant: ST RENATUS LLC
Approved: Jun 29, 2016 | RLD: Yes | RS: Yes | Type: RX

PATENTS:
Patent 9308191 | Expires: Apr 2, 2030
Patent 8580282 | Expires: Apr 2, 2030